FAERS Safety Report 9606567 (Version 3)
Quarter: 2013Q4

REPORT INFORMATION
  Report Type: Spontaneous
  Country: JP (occurrence: JP)
  Receive Date: 20131008
  Receipt Date: 20131029
  Transmission Date: 20140711
  Serious: Yes (Other)
  Sender: FDA-Public Use
  Company Number: JP-B.I. PHARMACEUTICALS,INC./RIDGEFIELD-2013-BI-31547GD

PATIENT
  Age: 83 Year
  Sex: Female

DRUGS (4)
  1. PRADAXA [Suspect]
     Indication: ANTICOAGULANT THERAPY
     Dosage: 220 MG
  2. DIURETIC [Suspect]
  3. VERAPAMIL [Suspect]
  4. ANTI-ARRHYTHMIA DRUGS [Concomitant]
     Indication: SICK SINUS SYNDROME
     Dosage: LOW-DOSE

REACTIONS (7)
  - Cardiac failure [Unknown]
  - Atrial flutter [Unknown]
  - Renal failure [Unknown]
  - Nodal arrhythmia [Unknown]
  - Hyperkalaemia [Unknown]
  - Renal impairment [Unknown]
  - Shock [Unknown]
